FAERS Safety Report 11742340 (Version 2)
Quarter: 2015Q4

REPORT INFORMATION
  Report Type: Spontaneous
  Country: US (occurrence: US)
  Receive Date: 20151116
  Receipt Date: 20151125
  Transmission Date: 20160304
  Serious: No
  Sender: FDA-Public Use
  Company Number: US-BAYER-2015-466992

PATIENT
  Age: 76 Year
  Sex: Female
  Weight: 75.28 kg

DRUGS (1)
  1. CLARITIN [Suspect]
     Active Substance: LORATADINE
     Indication: VIRAL SINUSITIS
     Dosage: 1 DF, QD
     Route: 048
     Dates: start: 20151105

REACTIONS (2)
  - Product use issue [None]
  - Drug ineffective for unapproved indication [None]

NARRATIVE: CASE EVENT DATE: 20151105
